FAERS Safety Report 8995331 (Version 1)
Quarter: 2013Q1

REPORT INFORMATION
  Report Type: Spontaneous
  Country: US (occurrence: US)
  Receive Date: 20130102
  Receipt Date: 20130102
  Transmission Date: 20140127
  Serious: Yes (Hospitalization)
  Sender: FDA-Public Use
  Company Number: US-ASTRAZENECA-2012SE95580

PATIENT
  Age: 16 Year
  Sex: Female
  Weight: 65.8 kg

DRUGS (7)
  1. SEROQUEL [Suspect]
     Indication: BIPOLAR DISORDER
     Route: 048
     Dates: start: 2010, end: 2011
  2. SEROQUEL [Suspect]
     Indication: BIPOLAR DISORDER
     Route: 048
     Dates: start: 2011
  3. LITHIUM [Suspect]
     Route: 065
  4. LITHIUM CITRATE [Suspect]
     Indication: BIPOLAR DISORDER
     Route: 048
  5. LITHIUM CARBONATE [Suspect]
     Route: 065
  6. WELBUTRIN [Concomitant]
     Indication: ANTIDEPRESSANT THERAPY
  7. METFORMIN [Concomitant]
     Indication: DIABETES MELLITUS
     Route: 048

REACTIONS (5)
  - Hostility [Recovered/Resolved]
  - Mood swings [Recovered/Resolved]
  - Suicidal ideation [Recovered/Resolved]
  - Drug level decreased [Recovered/Resolved]
  - Weight increased [Not Recovered/Not Resolved]
